FAERS Safety Report 5980072-3 (Version None)
Quarter: 2008Q4

REPORT INFORMATION
  Report Type: 
  Country: None (occurrence: None)
  Receive Date: 20081128
  Receipt Date: 20081112
  Transmission Date: 20090506
  Serious: Yes (Other)
  Sender: FDA-Public Use
  Company Number: 2008US003145

PATIENT
  Age: 77 Year
  Sex: Female

DRUGS (8)
  1. ADENOCARD [Suspect]
     Indication: ATRIAL FLUTTER
     Dosage: 6 MG, IV BOLUS
     Route: 040
  2. ASPIRIN [Concomitant]
  3. DILTIAZEM [Concomitant]
  4. OMEPRAZOLE [Concomitant]
  5. FRUSEMIDE (FUROSEMIDE SODIUM) [Concomitant]
  6. METOPROLOL TARTRATE [Concomitant]
  7. HEPARIN [Concomitant]
  8. NITROGLYCERIN [Concomitant]

REACTIONS (9)
  - ATRIAL FLUTTER [None]
  - ATRIOVENTRICULAR BLOCK COMPLETE [None]
  - BLOOD PRESSURE DECREASED [None]
  - LEFT VENTRICULAR DYSFUNCTION [None]
  - LOSS OF CONSCIOUSNESS [None]
  - VENTRICULAR ASYSTOLE [None]
  - VENTRICULAR HYPOKINESIA [None]
  - VENTRICULAR TACHYCARDIA [None]
  - VOMITING [None]
